FAERS Safety Report 15355138 (Version 1)
Quarter: 2018Q3

REPORT INFORMATION
  Report Type: Spontaneous
  Country: US (occurrence: US)
  Receive Date: 20180830
  Receipt Date: 20180830
  Transmission Date: 20181010
  Serious: No
  Sender: FDA-Public Use
  Company Number: None

PATIENT
  Age: 55 Year
  Sex: Female
  Weight: 123.75 kg

DRUGS (8)
  1. IRON [Concomitant]
     Active Substance: IRON
  2. B VITAMIN [Concomitant]
  3. LORAZEPAM. [Suspect]
     Active Substance: LORAZEPAM
     Indication: SLEEP DISORDER
     Dosage: ?          QUANTITY:1 TABLET(S);?
     Route: 048
  4. DAILY GREENS VEGETABLE [Concomitant]
  5. OLANZAPINE. [Concomitant]
     Active Substance: OLANZAPINE
  6. MULTI VITAMIN [Concomitant]
     Active Substance: VITAMINS
  7. FISH OIL [Concomitant]
     Active Substance: FISH OIL
  8. POTASSIUM VITAMIN [Concomitant]

REACTIONS (3)
  - Counterfeit product administered [None]
  - Drug ineffective [None]
  - Product substitution issue [None]

NARRATIVE: CASE EVENT DATE: 20180818
